FAERS Safety Report 8777357 (Version 3)
Quarter: 2012Q4

REPORT INFORMATION
  Report Type: 
  Country: US (occurrence: US)
  Receive Date: 20120911
  Receipt Date: 20120919
  Transmission Date: 20130627
  Serious: No
  Sender: FDA-Public Use
  Company Number: US-PFIZER INC-2012220041

PATIENT
  Age: 71 Year
  Sex: Male
  Weight: 86.17 kg

DRUGS (4)
  1. PHOSPHOLINE IODIDE [Suspect]
     Indication: NORMAL TENSION GLAUCOMA
     Dosage: one drop in each eye(0.125mg), 2x/day
     Route: 047
     Dates: start: 2010
  2. LUMIGAN [Suspect]
     Indication: NORMAL TENSION GLAUCOMA
     Dosage: one drop in each eye, daily
     Route: 047
  3. DORZOLAMIDE [Suspect]
     Indication: NORMAL TENSION GLAUCOMA
     Dosage: one drop in each eye, 2x/day
     Route: 047
  4. SIMVASTATIN [Concomitant]
     Indication: BLOOD CHOLESTEROL ABNORMAL
     Dosage: 20 mg, daily

REACTIONS (4)
  - Drug ineffective [Unknown]
  - Incorrect dose administered [Unknown]
  - Product quality issue [Unknown]
  - Product packaging quantity issue [Unknown]
